FAERS Safety Report 21117771 (Version 6)
Quarter: 2022Q4

REPORT INFORMATION
  Report Type: Report from Study
  Country: BR (occurrence: BR)
  Receive Date: 20220722
  Receipt Date: 20221222
  Transmission Date: 20230113
  Serious: Yes (Other)
  Sender: FDA-Public Use
  Company Number: BR-JNJFOC-20220632695

PATIENT
  Age: 32 Year
  Sex: Male
  Weight: 48 kg

DRUGS (8)
  1. INFLIXIMAB [Suspect]
     Active Substance: INFLIXIMAB
     Indication: Colitis ulcerative
     Dosage: 4 VIALS
     Route: 041
     Dates: start: 20220325
  2. INFLIXIMAB [Suspect]
     Active Substance: INFLIXIMAB
     Indication: Colitis ulcerative
     Route: 041
     Dates: start: 20220325
  3. REMICADE [Suspect]
     Active Substance: INFLIXIMAB
     Indication: Colitis ulcerative
     Route: 041
     Dates: start: 20220325
  4. AZATHIOPRINE [Concomitant]
     Active Substance: AZATHIOPRINE
  5. BUTYLSCOPOLAMINE BROMIDE [Concomitant]
     Active Substance: BUTYLSCOPOLAMINE BROMIDE
     Indication: Abdominal pain
  6. ISONIAZID [Concomitant]
     Active Substance: ISONIAZID
     Indication: Prophylaxis
  7. MESALAMINE [Concomitant]
     Active Substance: MESALAMINE
  8. DIPYRONE [Concomitant]
     Active Substance: DIPYRONE

REACTIONS (7)
  - Colitis ulcerative [Not Recovered/Not Resolved]
  - Depression [Unknown]
  - Feeling hot [Unknown]
  - Drug ineffective [Unknown]
  - COVID-19 [Not Recovered/Not Resolved]
  - Product dose omission issue [Unknown]
  - Off label use [Unknown]

NARRATIVE: CASE EVENT DATE: 20220101
